FAERS Safety Report 4803143-3 (Version None)
Quarter: 2005Q4

REPORT INFORMATION
  Report Type: 
  Country: None (occurrence: None)
  Receive Date: 20051019
  Receipt Date: 20050921
  Transmission Date: 20060501
  Serious: Yes (Hospitalization)
  Sender: FDA-Public Use
  Company Number: US-MERCK-0509USA03064

PATIENT
  Age: 50 Year
  Sex: Male

DRUGS (4)
  1. VIOXX [Suspect]
     Indication: ARTHRITIS
     Route: 048
     Dates: start: 20001011, end: 20050101
  2. VIOXX [Suspect]
     Indication: ARTHRALGIA
     Route: 048
     Dates: start: 20001011, end: 20050101
  3. ORPHENADRINE [Concomitant]
     Route: 065
  4. DICLOFENAC [Concomitant]
     Route: 065

REACTIONS (6)
  - CHEST PAIN [None]
  - DEPRESSION [None]
  - DYSPNOEA [None]
  - HAEMATOCHEZIA [None]
  - MUSCULOSKELETAL STIFFNESS [None]
  - PYREXIA [None]
